FAERS Safety Report 9790696 (Version 2)
Quarter: 2014Q1

REPORT INFORMATION
  Report Type: Report from Study
  Country: JP (occurrence: JP)
  Receive Date: 20131231
  Receipt Date: 20140218
  Transmission Date: 20141002
  Serious: No
  Sender: FDA-Public Use
  Company Number: JP-GLAXOSMITHKLINE-B0956127A

PATIENT
  Age: 83 Year
  Sex: Female

DRUGS (7)
  1. REQUIP [Suspect]
     Indication: PARKINSON^S DISEASE
     Dosage: 2MG PER DAY
     Route: 048
     Dates: start: 20121130, end: 20121213
  2. REQUIP [Suspect]
     Indication: PARKINSON^S DISEASE
     Dosage: 4MG PER DAY
     Route: 048
     Dates: start: 20121214, end: 20130208
  3. REQUIP [Suspect]
     Indication: PARKINSON^S DISEASE
     Dosage: 2MG PER DAY
     Route: 048
     Dates: start: 20130208
  4. MENESIT [Concomitant]
     Indication: PARKINSON^S DISEASE
     Route: 048
     Dates: start: 20121129
  5. METILDIGOXIN [Concomitant]
     Route: 048
     Dates: start: 20121129
  6. MAINTATE [Concomitant]
     Route: 048
     Dates: start: 20121129
  7. BONALON [Concomitant]
     Route: 048
     Dates: start: 20121129

REACTIONS (2)
  - Feeling abnormal [Recovered/Resolved]
  - Hallucination [Recovered/Resolved]
